FAERS Safety Report 7068077-5 (Version None)
Quarter: 2010Q4

REPORT INFORMATION
  Report Type: 
  Country: None (occurrence: None)
  Receive Date: 20101028
  Receipt Date: 20101019
  Transmission Date: 20110411
  Serious: No
  Sender: FDA-Public Use
  Company Number: US-B.I. PHARMACEUTICALS,INC./RIDGEFIELD-2010-BP-11326BP

PATIENT
  Sex: Female

DRUGS (9)
  1. COMBIVENT [Suspect]
     Indication: DYSPNOEA
     Route: 055
     Dates: start: 20070801, end: 20071101
  2. COMBIVENT [Suspect]
     Indication: OXYGEN SATURATION DECREASED
  3. TOPROL-XL [Concomitant]
     Indication: HYPERTENSION
  4. DIOVAN [Concomitant]
     Indication: HYPERTENSION
  5. DILTIAZEM HCL [Concomitant]
  6. SIMVASTATIN [Concomitant]
  7. GLIMEPIRIDE [Concomitant]
  8. METFORMIN HCL [Concomitant]
  9. TRAZODONE [Concomitant]

REACTIONS (6)
  - ANAEMIA [None]
  - BURNING FEET SYNDROME [None]
  - BURNING SENSATION [None]
  - HEADACHE [None]
  - OESOPHAGEAL DISORDER [None]
  - VITAMIN B12 DECREASED [None]
